FAERS Safety Report 7221579-0 (Version None)
Quarter: 2011Q1

REPORT INFORMATION
  Report Type: 
  Country: None (occurrence: None)
  Receive Date: 20110112
  Receipt Date: 20110107
  Transmission Date: 20110831
  Serious: Yes (Death)
  Sender: FDA-Public Use
  Company Number: FR-PFIZER INC-2011005505

PATIENT
  Age: 64 Year
  Sex: Male

DRUGS (1)
  1. SUNITINIB MALATE [Suspect]
     Dosage: UNK
     Dates: start: 20101018, end: 20101221

REACTIONS (1)
  - DEATH [None]
